FAERS Safety Report 10463909 (Version 4)
Quarter: 2016Q2

REPORT INFORMATION
  Report Type: Spontaneous
  Country: US (occurrence: US)
  Receive Date: 20140919
  Receipt Date: 20160421
  Transmission Date: 20160815
  Serious: No
  Sender: FDA-Public Use
  Company Number: US-PFIZER INC-2014255710

PATIENT
  Age: 74 Year
  Sex: Male
  Weight: 79 kg

DRUGS (5)
  1. SUTENT [Suspect]
     Active Substance: SUNITINIB MALATE
     Indication: RENAL CANCER
     Dosage: 50 MG DAILY  (28 DAYS ON AND 14 DAYS OFF) ONCE A DAY
     Route: 048
  2. XGEVA [Concomitant]
     Active Substance: DENOSUMAB
     Dosage: UNK
     Dates: start: 20140904
  3. XGEVA [Concomitant]
     Active Substance: DENOSUMAB
     Dosage: UNK
     Dates: start: 201403
  4. SUTENT [Suspect]
     Active Substance: SUNITINIB MALATE
     Indication: RENAL CELL CARCINOMA
     Dosage: 50 MG DAILY  (28 DAYS ON AND 14 DAYS OFF) ONCE A DAY
     Route: 048
     Dates: start: 201402, end: 2015
  5. SUTENT [Suspect]
     Active Substance: SUNITINIB MALATE
     Dosage: 50 MG, 1X/DAY
     Dates: start: 20140305

REACTIONS (8)
  - Hypertension [Recovered/Resolved]
  - Cough [Recovered/Resolved]
  - Blood triglycerides increased [Recovered/Resolved]
  - Thrombocytopenia [Recovered/Resolved]
  - Anaemia [Recovered/Resolved]
  - Blood cholesterol increased [Recovered/Resolved]
  - Blood thyroid stimulating hormone increased [Recovered/Resolved]
  - Growth of eyelashes [Recovered/Resolved]

NARRATIVE: CASE EVENT DATE: 2014
